FAERS Safety Report 17723561 (Version 1)
Quarter: 2020Q2

REPORT INFORMATION
  Report Type: Spontaneous
  Country: IT (occurrence: IT)
  Receive Date: 20200429
  Receipt Date: 20200429
  Transmission Date: 20200714
  Serious: Yes (Hospitalization, Other)
  Sender: FDA-Public Use
  Company Number: IT-ALVOGEN-2020-ALVOGEN-108215

PATIENT
  Age: 69 Year
  Sex: Female

DRUGS (12)
  1. MORPHINE [Suspect]
     Active Substance: MORPHINE
     Indication: PAIN
     Dosage: INCREASED
     Route: 058
  2. PREGABALIN. [Concomitant]
     Active Substance: PREGABALIN
     Indication: NEURALGIA
  3. FENTANYL. [Suspect]
     Active Substance: FENTANYL
     Indication: PAIN
     Route: 062
  4. MORPHINE [Suspect]
     Active Substance: MORPHINE
     Indication: PAIN
     Dosage: MORPHINE HYDROCHLORIDE 5MG IV (1/6 OF THE BACKGROUND PAIN DOSE) FOR BTCP EPISODES
     Route: 058
  5. SUNITINIB [Concomitant]
     Active Substance: SUNITINIB
     Indication: METASTASES TO BONE
  6. FENTANYL. [Suspect]
     Active Substance: FENTANYL
     Indication: CANCER PAIN
     Dosage: RAPID-ONSET OPIOID; FOR A MAXIMUM OF 5 TABLETS/DAY
     Route: 002
  7. MORPHINE [Suspect]
     Active Substance: MORPHINE
     Indication: CANCER PAIN
     Dosage: INCREASED
     Route: 042
  8. FENTANYL. [Suspect]
     Active Substance: FENTANYL
     Indication: PAIN
     Route: 062
  9. DENOSUMAB [Concomitant]
     Active Substance: DENOSUMAB
     Indication: CLEAR CELL RENAL CELL CARCINOMA
  10. MORPHINE [Suspect]
     Active Substance: MORPHINE
     Indication: PAIN
     Dosage: POSITIONING A CONTINUOUS SUBCUTANEOUS INFUSION OF MORPHINE HYDROCHLORIDE 30 MG/DAY FOR BACKGROUND...
     Route: 058
  11. SUNITINIB [Concomitant]
     Active Substance: SUNITINIB
     Indication: CLEAR CELL RENAL CELL CARCINOMA
  12. DENOSUMAB [Concomitant]
     Active Substance: DENOSUMAB
     Indication: METASTASES TO BONE

REACTIONS (2)
  - Obsessive-compulsive disorder [Recovered/Resolved]
  - Drug dependence [Recovered/Resolved]
